FAERS Safety Report 14212496 (Version 1)
Quarter: 2017Q4

REPORT INFORMATION
  Report Type: Spontaneous
  Country: US (occurrence: US)
  Receive Date: 20171122
  Receipt Date: 20171122
  Transmission Date: 20180321
  Serious: Yes (Other)
  Sender: FDA-Public Use
  Company Number: US-PFIZER INC-2017499943

PATIENT
  Age: 64 Year
  Sex: Female
  Weight: 54.88 kg

DRUGS (11)
  1. PHOSPHOLINE IODIDE [Suspect]
     Active Substance: ECHOTHIOPHATE IODIDE
     Indication: ANTERIOR CHAMBER CLEAVAGE SYNDROME
  2. MELOXICAM. [Concomitant]
     Active Substance: MELOXICAM
     Indication: ARTHRALGIA
     Dosage: ONE DAILY AS NEEDED
  3. LEXAPRO [Concomitant]
     Active Substance: ESCITALOPRAM OXALATE
     Dosage: UNK
  4. METFORMIN [Concomitant]
     Active Substance: METFORMIN HYDROCHLORIDE
     Dosage: UNK
  5. RESTASIS [Concomitant]
     Active Substance: CYCLOSPORINE
  6. PRAVASTATIN. [Concomitant]
     Active Substance: PRAVASTATIN
     Dosage: UNK
  7. TIMOLOL. [Concomitant]
     Active Substance: TIMOLOL
     Dosage: UNK
  8. PHOSPHOLINE IODIDE [Suspect]
     Active Substance: ECHOTHIOPHATE IODIDE
     Indication: GLAUCOMA
     Dosage: MIX AS DIRECTED AND INSTILL ONE DROP IN THE RIGHT EYE TWICE A DAY, DISCARD AFTER 28 DAYS
  9. EVISTA [Concomitant]
     Active Substance: RALOXIFENE HYDROCHLORIDE
     Dosage: UNK
  10. PREDNISOLONE. [Concomitant]
     Active Substance: PREDNISOLONE
     Dosage: UNK
  11. LATANOPROST. [Concomitant]
     Active Substance: LATANOPROST
     Dosage: UNK

REACTIONS (3)
  - Hepatic adenoma [Unknown]
  - Drug dose omission [Unknown]
  - Drug dispensing error [Unknown]

NARRATIVE: CASE EVENT DATE: 2016
